FAERS Safety Report 6144427-9 (Version None)
Quarter: 2009Q2

REPORT INFORMATION
  Report Type: 
  Country: None (occurrence: None)
  Receive Date: 20090406
  Receipt Date: 20090327
  Transmission Date: 20091009
  Serious: Yes (Other)
  Sender: FDA-Public Use
  Company Number: FR-TEVA-187228ISR

PATIENT
  Age: 64 Year
  Sex: Female

DRUGS (2)
  1. FLUOROURACIL [Suspect]
     Indication: COLON CANCER
  2. OXALIPLATIN [Suspect]
     Indication: COLON CANCER

REACTIONS (5)
  - CHOLESTASIS [None]
  - CYTOLYTIC HEPATITIS [None]
  - DRUG TOXICITY [None]
  - HEPATIC VEIN OCCLUSION [None]
  - NERVOUS SYSTEM DISORDER [None]
